FAERS Safety Report 7232477-0 (Version None)
Quarter: 2011Q1

REPORT INFORMATION
  Report Type: 
  Country: None (occurrence: None)
  Receive Date: 20110119
  Receipt Date: 20101123
  Transmission Date: 20110831
  Serious: Yes (Hospitalization, Other)
  Sender: FDA-Public Use
  Company Number: US-BAYER-201037548NA

PATIENT
  Sex: Female
  Weight: 133 kg

DRUGS (14)
  1. M.V.I. [Concomitant]
     Indication: PANCREATITIS
  2. ZYRTEC [Concomitant]
  3. DILAUDID [Concomitant]
  4. ZOFRAN [Concomitant]
  5. CARDURA [Concomitant]
  6. PROTONIX [Concomitant]
     Indication: PANCREATITIS
  7. LEVAQUIN [Concomitant]
  8. YASMIN [Suspect]
     Indication: ACNE
     Dosage: UNK
     Dates: start: 20070101, end: 20090101
  9. IBUPROFEN [Concomitant]
     Indication: PANCREATITIS
  10. UNCODEABLE ^UNCLASSIFIABLE^ [Concomitant]
     Route: 042
  11. VICODIN [Concomitant]
  12. YAZ [Suspect]
     Indication: ACNE
     Dosage: UNK
  13. OCELLA [Suspect]
     Indication: ACNE
     Dosage: UNK
     Dates: start: 20070101, end: 20090101
  14. ZOLOFT [Concomitant]

REACTIONS (7)
  - FLANK PAIN [None]
  - GALLBLADDER DISORDER [None]
  - VOMITING [None]
  - NEPHROLITHIASIS [None]
  - NAUSEA [None]
  - CHROMATURIA [None]
  - PYELONEPHRITIS ACUTE [None]
